FAERS Safety Report 5103503-X (Version None)
Quarter: 2006Q3

REPORT INFORMATION
  Report Type: 
  Country: None (occurrence: None)
  Receive Date: 20060908
  Receipt Date: 20060823
  Transmission Date: 20061208
  Serious: Yes (Death)
  Sender: FDA-Public Use
  Company Number: US-2006-003998

PATIENT
  Age: 53 Year
  Sex: Female

DRUGS (13)
  1. BETASERON [Suspect]
     Indication: SECONDARY PROGRESSIVE MULTIPLE SCLEROSIS
     Dosage: 8 MIU, EVERY 2 D, SUBCUTANEOUS
     Route: 058
     Dates: start: 20051030, end: 20060224
  2. PERCOCET [Concomitant]
  3. TIZANIDINE HCL [Concomitant]
  4. PROBANTHINE (PROPANTHELINE BROMIDE) [Concomitant]
  5. ZOLOFT [Concomitant]
  6. LORATADINE [Concomitant]
  7. BACLOFEN [Concomitant]
  8. BUSPAR [Concomitant]
  9. PROTONIX ^WYETH-AYERST^ (PANTOPRAZOLE SODIUM) [Concomitant]
  10. PREMARIN [Concomitant]
  11. COUMADIN [Concomitant]
  12. MECLIZINE [Concomitant]
  13. VITAMIN B-12 [Concomitant]

REACTIONS (1)
  - DRUG ABUSER [None]
